FAERS Safety Report 8197886 (Version 6)
Quarter: 2014Q3

REPORT INFORMATION
  Report Type: Report from Study
  Country: FR (occurrence: FR)
  Receive Date: 20111025
  Receipt Date: 20140916
  Transmission Date: 20150326
  Serious: Yes (Other)
  Sender: FDA-Public Use
  Company Number: FR-CELGENEUS-056-21880-11101742

PATIENT
  Age: 67 Year
  Sex: Male
  Weight: 89 kg

DRUGS (41)
  1. REVLIMID [Suspect]
     Active Substance: LENALIDOMIDE
     Indication: B-CELL LYMPHOMA
     Dosage: 25 MILLIGRAM
     Route: 048
     Dates: start: 20110201, end: 20110214
  2. REVLIMID [Suspect]
     Active Substance: LENALIDOMIDE
     Dosage: 25 MILLIGRAM
     Route: 048
     Dates: start: 20110517, end: 20110530
  3. RITUXIMAB [Suspect]
     Active Substance: RITUXIMAB
     Route: 041
     Dates: end: 20110901
  4. PEGFILGRASTIM [Concomitant]
     Active Substance: PEGFILGRASTIM
     Route: 065
     Dates: start: 20110408, end: 20110408
  5. PEGFILGRASTIM [Concomitant]
     Active Substance: PEGFILGRASTIM
     Route: 065
     Dates: start: 20110502, end: 20110502
  6. RITUXIMAB [Suspect]
     Active Substance: RITUXIMAB
     Dosage: 750 MILLIGRAM
     Route: 041
     Dates: start: 20110629, end: 20110629
  7. NEXIUM [Concomitant]
     Active Substance: ESOMEPRAZOLE MAGNESIUM
     Indication: GASTROOESOPHAGEAL REFLUX DISEASE
     Dosage: 40 MILLIGRAM
     Route: 065
     Dates: start: 20110202, end: 20110809
  8. RITUXIMAB [Suspect]
     Active Substance: RITUXIMAB
     Dosage: 750 MILLIGRAM
     Route: 041
     Dates: start: 20110426, end: 20110426
  9. RITUXIMAB [Suspect]
     Active Substance: RITUXIMAB
     Dosage: 750 MILLIGRAM
     Route: 041
     Dates: start: 20110517, end: 20110517
  10. PREDNISOLONE. [Suspect]
     Active Substance: PREDNISOLONE
     Indication: B-CELL LYMPHOMA
     Dosage: 400 MILLIGRAM
     Route: 048
     Dates: start: 20110201
  11. CYCLOPHOSPHAMID [Suspect]
     Active Substance: CYCLOPHOSPHAMIDE
     Indication: B-CELL LYMPHOMA
     Dosage: 1500 MILLIGRAM
     Route: 041
     Dates: start: 20110201, end: 20110201
  12. CYCLOPHOSPHAMID [Suspect]
     Active Substance: CYCLOPHOSPHAMIDE
     Dosage: 1500 MILLIGRAM
     Route: 041
     Dates: start: 20110315, end: 20110315
  13. PEGFILGRASTIM [Concomitant]
     Active Substance: PEGFILGRASTIM
     Route: 065
     Dates: start: 20110520, end: 20110520
  14. VINCRISTINE [Suspect]
     Active Substance: VINCRISTINE
     Dosage: 2 MILLIGRAM
     Route: 041
     Dates: start: 20110222, end: 20110222
  15. VINCRISTINE [Suspect]
     Active Substance: VINCRISTINE
     Dosage: 2 MILLIGRAM
     Route: 041
     Dates: start: 20110405, end: 20110405
  16. CYCLOPHOSPHAMID [Suspect]
     Active Substance: CYCLOPHOSPHAMIDE
     Dosage: 1500 MILLIGRAM
     Route: 041
     Dates: start: 20110405, end: 20110405
  17. DOXORUBICIN [Suspect]
     Active Substance: DOXORUBICIN
     Dosage: 100 MILLIGRAM
     Route: 041
     Dates: start: 20110405, end: 20110405
  18. PEGFILGRASTIM [Concomitant]
     Active Substance: PEGFILGRASTIM
     Dosage: 6 MILLIGRAM
     Route: 065
     Dates: start: 20110318, end: 20110318
  19. RITUXIMAB [Suspect]
     Active Substance: RITUXIMAB
     Dosage: 750 MILLIGRAM
     Route: 041
     Dates: start: 20110315, end: 20110315
  20. VINCRISTINE [Suspect]
     Active Substance: VINCRISTINE
     Dosage: 2 MILLIGRAM
     Route: 041
     Dates: start: 20110315, end: 20110315
  21. VINCRISTINE [Suspect]
     Active Substance: VINCRISTINE
     Dosage: 2 MILLIGRAM
     Route: 041
     Dates: start: 20110517, end: 20110517
  22. PREDNISOLONE. [Suspect]
     Active Substance: PREDNISOLONE
     Route: 048
     Dates: start: 20110517
  23. CYCLOPHOSPHAMID [Suspect]
     Active Substance: CYCLOPHOSPHAMIDE
     Dosage: 1500 MILLIGRAM
     Route: 041
     Dates: start: 20110426, end: 20110426
  24. RITUXIMAB [Suspect]
     Active Substance: RITUXIMAB
     Dosage: 750 MILLIGRAM
     Route: 041
     Dates: start: 20110607, end: 20110607
  25. VINCRISTINE [Suspect]
     Active Substance: VINCRISTINE
     Dosage: 2 MILLIGRAM
     Route: 041
     Dates: start: 20110426, end: 20110426
  26. DOXORUBICIN [Suspect]
     Active Substance: DOXORUBICIN
     Dosage: 100 MILLIGRAM
     Route: 041
     Dates: start: 20110222, end: 20110222
  27. DOXORUBICIN [Suspect]
     Active Substance: DOXORUBICIN
     Dosage: 100 MILLIGRAM
     Route: 041
     Dates: start: 20110315, end: 20110315
  28. DOXORUBICIN [Suspect]
     Active Substance: DOXORUBICIN
     Dosage: 100 MILLIGRAM
     Route: 041
     Dates: start: 20110517, end: 20110517
  29. METHYLPREDNISOLONE [Suspect]
     Active Substance: METHYLPREDNISOLONE
     Indication: B-CELL LYMPHOMA
     Route: 041
     Dates: start: 20110201, end: 20110517
  30. RITUXIMAB [Suspect]
     Active Substance: RITUXIMAB
     Dosage: 750 MILLIGRAM
     Route: 041
     Dates: start: 20110405, end: 20110405
  31. DOXORUBICIN [Suspect]
     Active Substance: DOXORUBICIN
     Indication: B-CELL LYMPHOMA
     Dosage: 100 MILLIGRAM
     Route: 041
     Dates: start: 20110201, end: 20110201
  32. SERETID [Concomitant]
     Indication: ASTHMA
     Route: 065
     Dates: start: 20110520, end: 20110809
  33. RITUXIMAB [Suspect]
     Active Substance: RITUXIMAB
     Indication: B-CELL LYMPHOMA
     Dosage: 750 MILLIGRAM
     Route: 041
     Dates: start: 20110201, end: 20110201
  34. RITUXIMAB [Suspect]
     Active Substance: RITUXIMAB
     Dosage: 750 MILLIGRAM
     Route: 041
     Dates: start: 20110222, end: 20110222
  35. VINCRISTINE [Suspect]
     Active Substance: VINCRISTINE
     Indication: B-CELL LYMPHOMA
     Dosage: 2 MILLIGRAM
     Route: 041
     Dates: start: 20110201, end: 20110201
  36. CYCLOPHOSPHAMID [Suspect]
     Active Substance: CYCLOPHOSPHAMIDE
     Dosage: 1500 MILLIGRAM
     Route: 041
     Dates: start: 20110222, end: 20110222
  37. CYCLOPHOSPHAMID [Suspect]
     Active Substance: CYCLOPHOSPHAMIDE
     Dosage: 1500 MILLIGRAM
     Route: 041
     Dates: start: 20110517, end: 20110517
  38. DOXORUBICIN [Suspect]
     Active Substance: DOXORUBICIN
     Dosage: 100 MILLIGRAM
     Route: 041
     Dates: start: 20110426, end: 20110426
  39. PEGFILGRASTIM [Concomitant]
     Active Substance: PEGFILGRASTIM
     Indication: PRODUCT USED FOR UNKNOWN INDICATION
     Dosage: 6 MILLIGRAM
     Route: 065
     Dates: start: 20110204, end: 20110204
  40. PEGFILGRASTIM [Concomitant]
     Active Substance: PEGFILGRASTIM
     Dosage: 6 MILLIGRAM
     Route: 065
     Dates: start: 20110225, end: 20110225
  41. ZELITREX [Concomitant]
     Active Substance: VALACYCLOVIR HYDROCHLORIDE
     Indication: HERPES ZOSTER
     Dosage: 1000 MILLIGRAM
     Route: 065
     Dates: start: 20110131, end: 20110811

REACTIONS (1)
  - Tonsil cancer [Recovered/Resolved]

NARRATIVE: CASE EVENT DATE: 20110901
